FAERS Safety Report 16919183 (Version 1)
Quarter: 2019Q4

REPORT INFORMATION
  Report Type: Spontaneous
  Country: NL (occurrence: NL)
  Receive Date: 20191015
  Receipt Date: 20191015
  Transmission Date: 20200122
  Serious: Yes (Other)
  Sender: FDA-Public Use
  Company Number: NVSC2019NL000642

PATIENT
  Age: 30 Month
  Sex: Male

DRUGS (5)
  1. DIAZOXIDE [Suspect]
     Active Substance: DIAZOXIDE
     Indication: HYPERINSULINISM
     Dosage: 10 MG/KG, QD, FOR 2 WEEKS
     Route: 065
  2. DIAZOXIDE [Suspect]
     Active Substance: DIAZOXIDE
     Indication: HYPOGLYCAEMIA
     Dosage: 5 MG/KG, QD
     Route: 048
  3. DIAZOXIDE [Suspect]
     Active Substance: DIAZOXIDE
     Dosage: 10 MG/KG, QD, AFTER 8 DAYS
     Route: 065
  4. HYDROCHLOROTHIAZIDE. [Suspect]
     Active Substance: HYDROCHLOROTHIAZIDE
     Indication: HYPERINSULINISM
     Dosage: 3 MG/KG, QD
     Route: 065
  5. HYDROCHLOROTHIAZIDE. [Suspect]
     Active Substance: HYDROCHLOROTHIAZIDE
     Indication: HYPOGLYCAEMIA
     Dosage: 2 MG/KG, QD
     Route: 048

REACTIONS (6)
  - Petechiae [Unknown]
  - Haematemesis [Unknown]
  - Rectal haemorrhage [Unknown]
  - Thrombocytopenia [Not Recovered/Not Resolved]
  - Product use in unapproved indication [Unknown]
  - Epistaxis [Unknown]
